FAERS Safety Report 4468018-0 (Version None)
Quarter: 2004Q4

REPORT INFORMATION
  Report Type: 
  Country: None (occurrence: None)
  Receive Date: 20041007
  Receipt Date: 20040929
  Transmission Date: 20050328
  Serious: Yes (Hospitalization)
  Sender: FDA-Public Use
  Company Number: 200413653FR

PATIENT
  Age: 83 Year
  Sex: Female
  Weight: 50 kg

DRUGS (13)
  1. OFLOCET [Suspect]
     Indication: URINARY TRACT INFECTION
     Route: 048
     Dates: start: 20040818, end: 20040825
  2. LOVENOX [Suspect]
     Route: 058
     Dates: start: 20040818
  3. NITRIDERM TTS [Concomitant]
     Indication: ANGINA PECTORIS
     Route: 061
  4. RISORDAN [Concomitant]
     Route: 048
  5. ASPEGIC 325 [Concomitant]
     Route: 048
  6. CAPTOPRIL [Concomitant]
     Indication: HYPERTENSION
     Route: 048
  7. METFORMIN HCL [Concomitant]
  8. DIGOXIN [Concomitant]
  9. DITROPAN [Concomitant]
  10. LASILIX [Concomitant]
  11. PRAZOSIN HCL [Concomitant]
  12. VOGALENE [Concomitant]
  13. NOOTROPYL [Concomitant]

REACTIONS (2)
  - NEUTROPENIA [None]
  - THROMBOCYTOPENIA [None]
